FAERS Safety Report 19360403 (Version 9)
Quarter: 2022Q3

REPORT INFORMATION
  Report Type: Spontaneous
  Country: PR (occurrence: PR)
  Receive Date: 20210601
  Receipt Date: 20220804
  Transmission Date: 20221026
  Serious: No
  Sender: FDA-Public Use
  Company Number: US-PFIZER INC-2021424292

PATIENT
  Age: 67 Year
  Sex: Female
  Weight: 97.07 kg

DRUGS (2)
  1. IBRANCE [Suspect]
     Active Substance: PALBOCICLIB
     Indication: Breast cancer female
     Dosage: 125 MG
  2. IBRANCE [Suspect]
     Active Substance: PALBOCICLIB
     Dosage: 100 MG, CYCLIC (ONE TIME A DAY FOR 21 DAYS AND OFF FOR 7 DAYS)

REACTIONS (12)
  - Fatigue [Unknown]
  - Depression [Not Recovered/Not Resolved]
  - Immune system disorder [Unknown]
  - Pain [Unknown]
  - Gait disturbance [Unknown]
  - Hypersomnia [Unknown]
  - Illness [Unknown]
  - Asthenia [Unknown]
  - Arthralgia [Unknown]
  - Platelet count decreased [Unknown]
  - Neutrophil count decreased [Unknown]
  - Thinking abnormal [Not Recovered/Not Resolved]
